FAERS Safety Report 6297926-3 (Version None)
Quarter: 2009Q3

REPORT INFORMATION
  Report Type: 
  Country: None (occurrence: None)
  Receive Date: 20090805
  Receipt Date: 20090729
  Transmission Date: 20100115
  Serious: Yes (Hospitalization)
  Sender: FDA-Public Use
  Company Number: A0799309A

PATIENT
  Age: 52 Year
  Sex: Female

DRUGS (12)
  1. VENTOLIN [Suspect]
     Indication: CHRONIC OBSTRUCTIVE PULMONARY DISEASE
     Dosage: 2PUFF FOUR TIMES PER DAY
     Route: 055
     Dates: start: 20090624
  2. ADVAIR HFA [Suspect]
     Indication: CHRONIC OBSTRUCTIVE PULMONARY DISEASE
     Dosage: 1PUFF PER DAY
     Route: 055
     Dates: start: 20040101
  3. SPIRIVA [Concomitant]
  4. ADVAIR HFA [Concomitant]
  5. MORPHINE [Concomitant]
  6. VICODIN [Concomitant]
  7. MUSCLE RELAXER [Concomitant]
  8. HEART MEDICATION [Concomitant]
  9. ANTI-CHOLESTEROL MEDICATION [Concomitant]
  10. OTHER MEDICATIONS [Concomitant]
  11. PREDNISONE TAB [Concomitant]
  12. OXYGEN [Concomitant]

REACTIONS (5)
  - CANDIDIASIS [None]
  - CHEST PAIN [None]
  - DYSPNOEA [None]
  - FEELING HOT [None]
  - NON-CARDIAC CHEST PAIN [None]
